FAERS Safety Report 16356932 (Version 2)
Quarter: 2019Q2

REPORT INFORMATION
  Report Type: Spontaneous
  Country: GB (occurrence: GB)
  Receive Date: 20190527
  Receipt Date: 20190530
  Transmission Date: 20190711
  Serious: Yes (Other)
  Sender: FDA-Public Use
  Company Number: GB-ROCHE-2316838

PATIENT
  Age: 15 Year
  Sex: Male
  Weight: 53.6 kg

DRUGS (2)
  1. HEMLIBRA [Suspect]
     Active Substance: EMICIZUMAB-KXWH
     Indication: FACTOR VIII INHIBITION
     Dosage: LOADING DOSE: 3 MG/KG?WEEKLY: 1.5 MG/KG
     Route: 058
     Dates: start: 20180215, end: 20190326
  2. HEMLIBRA [Suspect]
     Active Substance: EMICIZUMAB-KXWH
     Route: 058
     Dates: start: 20190418

REACTIONS (3)
  - Drug level increased [Recovering/Resolving]
  - Activated partial thromboplastin time shortened [Unknown]
  - Overdose [Unknown]

NARRATIVE: CASE EVENT DATE: 20190326
